FAERS Safety Report 4780162-7 (Version None)
Quarter: 2005Q3

REPORT INFORMATION
  Report Type: 
  Country: None (occurrence: None)
  Receive Date: 20050927
  Receipt Date: 20050323
  Transmission Date: 20060218
  Serious: Yes (Hospitalization)
  Sender: FDA-Public Use
  Company Number: US-MERCK-0504USA01618

PATIENT
  Age: 41 Year
  Sex: Female

DRUGS (6)
  1. VIOXX [Suspect]
     Indication: ARTHRALGIA
     Route: 048
     Dates: start: 20000101
  2. METHOTREXATE [Suspect]
     Indication: RHEUMATOID ARTHRITIS
     Route: 048
  3. LEVOFLOXACIN [Concomitant]
     Route: 065
  4. PIRBUTEROL ACETATE [Concomitant]
     Route: 055
  5. CYANOCOBALAMIN [Concomitant]
     Route: 065
  6. MEDROXYPROGESTERONE ACETATE [Concomitant]
     Route: 065

REACTIONS (12)
  - BLOOD CHLORIDE INCREASED [None]
  - BONE MARROW DEPRESSION [None]
  - DRUG INTERACTION [None]
  - EPSTEIN-BARR VIRUS INFECTION [None]
  - ERYTHEMA MULTIFORME [None]
  - HAEMATOTOXICITY [None]
  - HEPATOSPLENOMEGALY [None]
  - IMMUNOSUPPRESSION [None]
  - LEUKOCYTOCLASTIC VASCULITIS [None]
  - LYMPHOPROLIFERATIVE DISORDER [None]
  - PYREXIA [None]
  - RENAL FAILURE ACUTE [None]
